FAERS Safety Report 10111243 (Version 1)
Quarter: 2014Q2

REPORT INFORMATION
  Report Type: Spontaneous
  Country: US (occurrence: US)
  Receive Date: 20140425
  Receipt Date: 20140425
  Transmission Date: 20141212
  Serious: Yes (Hospitalization, Other)
  Sender: FDA-Public Use
  Company Number: US-UCBSA-119131

PATIENT
  Age: 49 Year
  Sex: Male

DRUGS (1)
  1. CIMZIA [Suspect]
     Indication: CROHN^S DISEASE
     Dosage: DOSE STRENGTH: 200MG
     Route: 058
     Dates: start: 20120601, end: 20140310

REACTIONS (1)
  - Pneumonia [Unknown]
